FAERS Safety Report 5721011-X (Version None)
Quarter: 2008Q2

REPORT INFORMATION
  Report Type: 
  Country: None (occurrence: None)
  Receive Date: 20080429
  Receipt Date: 20070518
  Transmission Date: 20081010
  Serious: No
  Sender: FDA-Public Use
  Company Number: A0652191A

PATIENT
  Age: 80 Year
  Sex: Female

DRUGS (3)
  1. COMPAZINE [Suspect]
     Indication: NAUSEA
     Route: 065
     Dates: start: 20070501
  2. NAVELBINE [Concomitant]
     Indication: BREAST CANCER
     Dates: start: 20070501
  3. ONDANSETRON [Concomitant]

REACTIONS (2)
  - DRUG INEFFECTIVE [None]
  - VOMITING [None]
